FAERS Safety Report 23908410 (Version 1)
Quarter: 2024Q2

REPORT INFORMATION
  Report Type: Spontaneous
  Country: US (occurrence: US)
  Receive Date: 20240528
  Receipt Date: 20240528
  Transmission Date: 20240715
  Serious: Yes (Other)
  Sender: FDA-Public Use
  Company Number: US-FreseniusKabi-FK202408108

PATIENT
  Age: 75 Year
  Sex: Male

DRUGS (3)
  1. FLUDARABINE [Suspect]
     Active Substance: FLUDARABINE PHOSPHATE
     Indication: Lymphodepletion
     Dosage: FREQUENCY: QD?FORM OF ADMIN: INFUSION?ROUTE OF ADMIN: INTRAVENOUS
     Dates: start: 20240317, end: 20240319
  2. CYCLOPHOSPHAMIDE [Suspect]
     Active Substance: CYCLOPHOSPHAMIDE
     Indication: Lymphodepletion
     Dosage: FORM OF ADMIN: INFUSION?ROUTE OF ADMIN: INTRAVENOUS USE
     Dates: start: 20240317, end: 20240319
  3. CB-012 [Suspect]
     Active Substance: CB-012
     Indication: Acute myeloid leukaemia
     Dosage: 25 X 10^6 VIABLE CAR+ CELLS, SINGLE?ROUTE OF ADMIN: INTRAVENOUS USE?FORM OF ADMIN: SUSPENSION FOR IN
     Dates: start: 20240328, end: 20240328

REACTIONS (1)
  - Immune effector cell-associated neurotoxicity syndrome [Recovered/Resolved]

NARRATIVE: CASE EVENT DATE: 20240406
